FAERS Safety Report 4495301-5 (Version None)
Quarter: 2004Q4

REPORT INFORMATION
  Report Type: 
  Country: None (occurrence: None)
  Receive Date: 20041108
  Receipt Date: 20040927
  Transmission Date: 20050328
  Serious: No
  Sender: FDA-Public Use
  Company Number: US-GLAXOSMITHKLINE-A0527404A

PATIENT
  Age: 51 Year
  Sex: Female

DRUGS (5)
  1. AVANDAMET [Suspect]
     Dosage: 1TAB TWICE PER DAY
     Route: 048
  2. DIOVAN HCT [Concomitant]
  3. COREG [Concomitant]
  4. STARLIX [Concomitant]
  5. UNKNOWN MEDICATION [Concomitant]

REACTIONS (2)
  - ASTHENIA [None]
  - BLOOD GLUCOSE INCREASED [None]
